FAERS Safety Report 14680688 (Version 1)
Quarter: 2018Q1

REPORT INFORMATION
  Report Type: Spontaneous
  Country: US (occurrence: US)
  Receive Date: 20180326
  Receipt Date: 20180326
  Transmission Date: 20180509
  Serious: No
  Sender: FDA-Public Use
  Company Number: US-CELGENEUS-USA-20180308212

PATIENT
  Sex: Female

DRUGS (10)
  1. THALOMID [Suspect]
     Active Substance: THALIDOMIDE
     Indication: OFF LABEL USE
     Dosage: 150-100 MILLIGRAM
     Route: 048
     Dates: start: 200610
  2. THALOMID [Suspect]
     Active Substance: THALIDOMIDE
     Dosage: 200 MILLIGRAM
     Route: 048
     Dates: start: 201712
  3. THALOMID [Suspect]
     Active Substance: THALIDOMIDE
     Indication: NEOPLASM
     Dosage: 100 MILLIGRAM
     Route: 048
     Dates: start: 200605
  4. THALOMID [Suspect]
     Active Substance: THALIDOMIDE
     Dosage: 200-250 MILLIGRAM
     Route: 048
     Dates: start: 201101
  5. THALOMID [Suspect]
     Active Substance: THALIDOMIDE
     Dosage: 250 MILLIGRAM
     Route: 048
     Dates: start: 20090304
  6. THALOMID [Suspect]
     Active Substance: THALIDOMIDE
     Dosage: 200-100 MILLIGRAM
     Route: 048
     Dates: start: 200908
  7. THALOMID [Suspect]
     Active Substance: THALIDOMIDE
     Dosage: 300-350 MILLIGRAM
     Route: 048
     Dates: start: 201202
  8. THALOMID [Suspect]
     Active Substance: THALIDOMIDE
     Dosage: 200-150 MILLIGRAM
     Route: 048
     Dates: start: 201302
  9. THALOMID [Suspect]
     Active Substance: THALIDOMIDE
     Dosage: 200-250 MILLIGRAM
     Route: 048
     Dates: start: 200703
  10. THALOMID [Suspect]
     Active Substance: THALIDOMIDE
     Dosage: 250-300 MILLIGRAM
     Route: 048
     Dates: start: 201001

REACTIONS (1)
  - Adverse event [Unknown]
